FAERS Safety Report 5582850-1 (Version None)
Quarter: 2008Q1

REPORT INFORMATION
  Report Type: 
  Country: None (occurrence: None)
  Receive Date: 20080107
  Receipt Date: 20080102
  Transmission Date: 20080703
  Serious: Yes (Life-Threatening, Hospitalization)
  Sender: FDA-Public Use
  Company Number: US-ASTRAZENECA-2008UW00059

PATIENT
  Age: 68 Year
  Sex: Male

DRUGS (5)
  1. PRILOSEC [Suspect]
     Indication: CORONARY ARTERY DISEASE
     Route: 048
     Dates: start: 20070226
  2. ATORVASTATIN CALCIUM [Concomitant]
     Indication: CORONARY ARTERY DISEASE
     Dates: start: 20070509
  3. NIFEDIPINE [Concomitant]
     Indication: CORONARY ARTERY DISEASE
     Dates: start: 20070611
  4. METOPROLOL SUCCINATE [Concomitant]
     Indication: CORONARY ARTERY DISEASE
     Route: 048
     Dates: start: 20070611
  5. INSULIN ASPART [Concomitant]
     Dates: start: 20070509

REACTIONS (1)
  - MYOCARDIAL INFARCTION [None]
